FAERS Safety Report 6014842-2 (Version None)
Quarter: 2008Q4

REPORT INFORMATION
  Report Type: 
  Country: None (occurrence: None)
  Receive Date: 20081219
  Receipt Date: 20081208
  Transmission Date: 20090506
  Serious: Yes (Death)
  Sender: FDA-Public Use
  Company Number: JP-PFIZER INC-2008154749

PATIENT
  Age: 65 Year
  Sex: Male

DRUGS (1)
  1. ZOLOFT [Suspect]
     Indication: DEPRESSION
     Dosage: 75 MG,
     Route: 048
     Dates: start: 20080614, end: 20080901

REACTIONS (1)
  - BLADDER CANCER [None]
